FAERS Safety Report 18837605 (Version 1)
Quarter: 2021Q1

REPORT INFORMATION
  Report Type: Spontaneous
  Country: US (occurrence: US)
  Receive Date: 20210203
  Receipt Date: 20210203
  Transmission Date: 20210419
  Serious: No
  Sender: FDA-Public Use
  Company Number: US-ALLERGAN-2027392US

PATIENT
  Age: 36 Year
  Sex: Female

DRUGS (9)
  1. BOTOX COSMETIC [Suspect]
     Active Substance: ONABOTULINUMTOXINA
     Indication: SKIN WRINKLING
     Dosage: 10 UNIT, SINGLE
     Route: 030
     Dates: start: 20200530, end: 20200530
  2. MAGNESIUM [Concomitant]
     Active Substance: MAGNESIUM
  3. PROPRANOLOL HCL [Concomitant]
     Active Substance: PROPRANOLOL HYDROCHLORIDE
  4. BOTOX COSMETIC [Suspect]
     Active Substance: ONABOTULINUMTOXINA
     Indication: SKIN WRINKLING
     Dosage: 5 UNITE, SINGLE
     Route: 030
     Dates: start: 20200530, end: 20200530
  5. BOTOX COSMETIC [Suspect]
     Active Substance: ONABOTULINUMTOXINA
     Indication: SKIN WRINKLING
     Dosage: 10 UNIT, SINGLE
     Route: 030
     Dates: start: 20200530, end: 20200530
  6. BOTOX COSMETIC [Suspect]
     Active Substance: ONABOTULINUMTOXINA
     Indication: SKIN WRINKLING
     Dosage: 24 UNIT, SINGLE
     Route: 030
     Dates: start: 20200530, end: 20200530
  7. POTASSIUM [Concomitant]
     Active Substance: POTASSIUM
  8. AMBIEN [Concomitant]
     Active Substance: ZOLPIDEM TARTRATE
  9. BOTOX COSMETIC [Suspect]
     Active Substance: ONABOTULINUMTOXINA
     Indication: SKIN WRINKLING
     Dosage: 5 UNITS DEVIDED 2.5, SINGLE
     Route: 030
     Dates: start: 20200530, end: 20200530

REACTIONS (3)
  - Off label use [Unknown]
  - Muscle spasms [Recovering/Resolving]
  - Sensory disturbance [Recovering/Resolving]

NARRATIVE: CASE EVENT DATE: 20200530
